FAERS Safety Report 9614644 (Version 1)
Quarter: 2013Q4

REPORT INFORMATION
  Report Type: Spontaneous
  Country: US (occurrence: US)
  Receive Date: 20131011
  Receipt Date: 20131011
  Transmission Date: 20140711
  Serious: No
  Sender: FDA-Public Use
  Company Number: US-JNJFOC-20131001601

PATIENT
  Age: 58 Year
  Sex: Female

DRUGS (3)
  1. INVEGA SUSTENNA [Suspect]
     Indication: SCHIZOPHRENIA
     Route: 030
     Dates: end: 2013
  2. INVEGA SUSTENNA [Suspect]
     Indication: SCHIZOPHRENIA
     Route: 030
  3. INVEGA SUSTENNA [Suspect]
     Indication: SCHIZOPHRENIA
     Route: 030
     Dates: start: 2013

REACTIONS (4)
  - Weight increased [Unknown]
  - Inappropriate schedule of drug administration [Unknown]
  - Drug dispensing error [Unknown]
  - Off label use [Unknown]
